FAERS Safety Report 11586409 (Version 1)
Quarter: 2015Q3

REPORT INFORMATION
  Report Type: Spontaneous
  Country: US (occurrence: US)
  Receive Date: 20150916
  Receipt Date: 20150916
  Transmission Date: 20151125
  Serious: No
  Sender: FDA-Public Use
  Company Number: US-ELI_LILLY_AND_COMPANY-US200803000421

PATIENT
  Sex: Female

DRUGS (4)
  1. TYLENOL /USA/ [Concomitant]
  2. MIACALCIN [Concomitant]
     Active Substance: CALCITONIN SALMON
  3. FORTEO [Suspect]
     Active Substance: TERIPARATIDE
  4. EVISTA [Concomitant]
     Active Substance: RALOXIFENE HYDROCHLORIDE

REACTIONS (2)
  - Malaise [Unknown]
  - Anxiety [Unknown]
